FAERS Safety Report 9205394 (Version 1)
Quarter: 2013Q2

REPORT INFORMATION
  Report Type: Spontaneous
  Country: US (occurrence: US)
  Receive Date: 20130402
  Receipt Date: 20130402
  Transmission Date: 20140414
  Serious: No
  Sender: FDA-Public Use
  Company Number: US-009507513-1304USA001051

PATIENT
  Sex: Female

DRUGS (2)
  1. MIRALAX [Suspect]
     Indication: FLATULENCE
     Dosage: UNK, UNKNOWN
     Route: 048
     Dates: start: 2012, end: 201211
  2. MIRALAX [Suspect]
     Indication: MEDICAL OBSERVATION

REACTIONS (4)
  - Faecal incontinence [Unknown]
  - Diarrhoea [Unknown]
  - Incorrect drug administration duration [Unknown]
  - Off label use [Unknown]
